FAERS Safety Report 6515378-2 (Version None)
Quarter: 2009Q4

REPORT INFORMATION
  Report Type: 
  Country: None (occurrence: None)
  Receive Date: 20091223
  Receipt Date: 20091210
  Transmission Date: 20100525
  Serious: Yes (Hospitalization)
  Sender: FDA-Public Use
  Company Number: PHHO2009US15436

PATIENT
  Sex: Male

DRUGS (3)
  1. AFINITOR [Suspect]
     Indication: HEAD AND NECK CANCER
     Dosage: UNK
     Dates: start: 20091113
  2. DOCETAXEL [Suspect]
     Indication: HEAD AND NECK CANCER
  3. CISPLATIN [Suspect]
     Indication: HEAD AND NECK CANCER

REACTIONS (5)
  - DEHYDRATION [None]
  - DIARRHOEA [None]
  - DYSPEPSIA [None]
  - FATIGUE [None]
  - FEBRILE NEUTROPENIA [None]
